FAERS Safety Report 7524449-3 (Version None)
Quarter: 2011Q2

REPORT INFORMATION
  Report Type: 
  Country: None (occurrence: None)
  Receive Date: 20110525
  Receipt Date: 20110510
  Transmission Date: 20111010
  Serious: Yes (Other)
  Sender: FDA-Public Use
  Company Number: 2011MA005756

PATIENT
  Age: 7 Year
  Sex: Female

DRUGS (1)
  1. PROPRANOLOL HCL [Suspect]
     Indication: SYNCOPE

REACTIONS (4)
  - ELECTROCARDIOGRAM QT PROLONGED [None]
  - SUPRAVENTRICULAR EXTRASYSTOLES [None]
  - HYPOTENSION [None]
  - ATRIOVENTRICULAR BLOCK [None]
